FAERS Safety Report 13592751 (Version 6)
Quarter: 2017Q3

REPORT INFORMATION
  Report Type: Spontaneous
  Country: US (occurrence: US)
  Receive Date: 20170530
  Receipt Date: 20170929
  Transmission Date: 20171127
  Serious: Yes (Congenital Anomaly, Other)
  Sender: FDA-Public Use
  Company Number: PHEH2017US015409

PATIENT
  Sex: Female

DRUGS (2)
  1. ZOFRAN [Suspect]
     Active Substance: ONDANSETRON HYDROCHLORIDE
     Indication: FOETAL EXPOSURE DURING PREGNANCY
     Route: 064
  2. ZOFRAN [Suspect]
     Active Substance: ONDANSETRON HYDROCHLORIDE
     Indication: FOETAL EXPOSURE DURING PREGNANCY
     Route: 064

REACTIONS (45)
  - Atrial septal defect [Unknown]
  - Pulmonary hypoplasia [Unknown]
  - Coronary artery disease [Unknown]
  - Right atrial enlargement [Unknown]
  - Gastrooesophageal reflux disease [Unknown]
  - Hiatus hernia [Unknown]
  - Rhinorrhoea [Unknown]
  - Neonatal respiratory distress syndrome [Unknown]
  - Oesophagitis [Unknown]
  - Pulmonary artery stenosis congenital [Unknown]
  - Right aortic arch [Unknown]
  - Pulmonary valve stenosis congenital [Unknown]
  - Ventricular hypertrophy [Unknown]
  - Fever neonatal [Unknown]
  - Cardiomegaly [Unknown]
  - Ventricular septal defect [Unknown]
  - Pulmonary valve incompetence [Unknown]
  - Right ventricular hypertrophy [Unknown]
  - Pleural effusion [Unknown]
  - Injury [Unknown]
  - Hyperhidrosis [Unknown]
  - Cough [Unknown]
  - Sinus arrhythmia [Unknown]
  - Left-to-right cardiac shunt [Unknown]
  - Hypoglycaemia neonatal [Unknown]
  - Failure to thrive [Unknown]
  - Atelectasis neonatal [Unknown]
  - Left atrial enlargement [Unknown]
  - Diarrhoea neonatal [Unknown]
  - Foetal exposure during pregnancy [Unknown]
  - Dyspnoea [Unknown]
  - Patent ductus arteriosus [Unknown]
  - Cardiac murmur [Unknown]
  - Jaundice neonatal [Unknown]
  - Fallot^s tetralogy [Unknown]
  - Vascular resistance pulmonary increased [Unknown]
  - Pericardial effusion [Unknown]
  - Seizure [Unknown]
  - Sinus tachycardia [Unknown]
  - Otitis media [Unknown]
  - Tricuspid valve incompetence [Unknown]
  - Bundle branch block right [Unknown]
  - Hypokalaemia [Unknown]
  - Upper respiratory tract infection [Unknown]
  - Rash neonatal [Unknown]
